FAERS Safety Report 6317020-2 (Version None)
Quarter: 2009Q3

REPORT INFORMATION
  Report Type: 
  Country: None (occurrence: None)
  Receive Date: 20090820
  Receipt Date: 20090811
  Transmission Date: 20100115
  Serious: Yes (Other)
  Sender: FDA-Public Use
  Company Number: US-PFIZER INC-2009254991

PATIENT
  Sex: Male
  Weight: 58.05 kg

DRUGS (4)
  1. DILANTIN [Suspect]
     Indication: GRAND MAL CONVULSION
     Dosage: UNK
     Route: 048
  2. DILANTIN [Suspect]
     Indication: PETIT MAL EPILEPSY
  3. PHENYTOIN [Suspect]
     Indication: CONVULSION
  4. DEPAKOTE [Suspect]
     Indication: CONVULSION
     Dosage: UNK

REACTIONS (5)
  - ANTICONVULSANT DRUG LEVEL INCREASED [None]
  - CONVULSION [None]
  - GINGIVAL SWELLING [None]
  - GINGIVITIS [None]
  - RASH [None]
